FAERS Safety Report 5804312-6 (Version None)
Quarter: 2008Q3

REPORT INFORMATION
  Report Type: 
  Country: None (occurrence: None)
  Receive Date: 20080702
  Receipt Date: 20071101
  Transmission Date: 20090109
  Serious: Yes (Other)
  Sender: FDA-Public Use
  Company Number: US-WYE-H01097407

PATIENT
  Age: 75 Year
  Sex: Female
  Weight: 53.12 kg

DRUGS (3)
  1. ADVIL [Suspect]
     Indication: PAIN
     Dosage: 1 TABLET 1X PER 1 DAY, ORAL
     Route: 048
     Dates: start: 20071031, end: 20071031
  2. HYDROCHLOROTHIAZIDE [Concomitant]
  3. LOTREL [Concomitant]

REACTIONS (1)
  - HYPERHIDROSIS [None]
